FAERS Safety Report 25400845 (Version 2)
Quarter: 2025Q4

REPORT INFORMATION
  Report Type: Report from Study
  Country: EU (occurrence: EU)
  Receive Date: 20250605
  Receipt Date: 20251111
  Transmission Date: 20260117
  Serious: Yes (Hospitalization, Other)
  Sender: ABBVIE
  Company Number: EU-ABBVIE-6310714

PATIENT
  Age: 82 Year
  Sex: Male

DRUGS (1)
  1. FOSCARBIDOPA\FOSLEVODOPA [Suspect]
     Active Substance: FOSCARBIDOPA\FOSLEVODOPA
     Indication: Parkinson^s disease
     Dosage: CR 0.44 ML/H, CR HIGH 0.47 ML/H, CR LOW 0.25 ML/H, ED 0.20 ML
     Route: 058
     Dates: start: 20240916

REACTIONS (6)
  - Blood pressure fluctuation [Not Recovered/Not Resolved]
  - Fall [Recovered/Resolved]
  - Pain [Recovering/Resolving]
  - General physical health deterioration [Not Recovered/Not Resolved]
  - Shoulder fracture [Recovering/Resolving]
  - Parkinson^s disease [Not Recovered/Not Resolved]

NARRATIVE: CASE EVENT DATE: 20250101
